FAERS Safety Report 15429571 (Version 2)
Quarter: 2018Q4

REPORT INFORMATION
  Report Type: Report from Study
  Country: BG (occurrence: BG)
  Receive Date: 20180926
  Receipt Date: 20181011
  Transmission Date: 20190204
  Serious: Yes (Other)
  Sender: FDA-Public Use
  Company Number: BG-PFIZER INC-2018385622

PATIENT
  Age: 54 Year
  Sex: Female
  Weight: 73 kg

DRUGS (8)
  1. LEUCOVORIN [FOLINIC ACID] [Suspect]
     Active Substance: LEUCOVORIN
     Dosage: 4 MG/KG, CYCLIC
     Route: 042
     Dates: start: 20180205, end: 20180205
  2. FLUOROURACIL. [Suspect]
     Active Substance: FLUOROURACIL
     Indication: COLORECTAL CANCER METASTATIC
     Dosage: 4 MG/KG, CYCLIC
     Route: 042
     Dates: start: 20171109, end: 20171109
  3. IRINOTECAN HCL [Suspect]
     Active Substance: IRINOTECAN HYDROCHLORIDE
     Indication: COLORECTAL CANCER METASTATIC
     Dosage: 4 MG/KG, CYCLIC
     Route: 042
     Dates: start: 20171109, end: 20171109
  4. AFLIBERCEPT [Suspect]
     Active Substance: AFLIBERCEPT
     Indication: COLORECTAL CANCER METASTATIC
     Dosage: 4 MG/KG, CYCLIC
     Route: 042
     Dates: start: 20171109, end: 20171109
  5. IRINOTECAN HCL [Suspect]
     Active Substance: IRINOTECAN HYDROCHLORIDE
     Dosage: 4 MG/KG, CYCLIC
     Route: 042
     Dates: start: 20180205, end: 20180205
  6. FLUOROURACIL. [Suspect]
     Active Substance: FLUOROURACIL
     Dosage: 4 UNK, CYCLIC
     Route: 042
     Dates: start: 20180205, end: 20180205
  7. LEUCOVORIN [FOLINIC ACID] [Suspect]
     Active Substance: LEUCOVORIN
     Indication: COLORECTAL CANCER METASTATIC
     Dosage: 4 MG/KG, CYCLIC
     Route: 042
     Dates: start: 20171109, end: 20171109
  8. AFLIBERCEPT [Suspect]
     Active Substance: AFLIBERCEPT
     Dosage: 4 MG/KG, CYCLIC
     Route: 042
     Dates: start: 20180205, end: 20180205

REACTIONS (1)
  - Rectal haemorrhage [Recovered/Resolved]

NARRATIVE: CASE EVENT DATE: 20171119
